FAERS Safety Report 9254735 (Version 1)
Quarter: 2013Q2

REPORT INFORMATION
  Report Type: Spontaneous
  Country: US (occurrence: None)
  Receive Date: 20130422
  Receipt Date: 20130422
  Transmission Date: 20140414
  Serious: Yes (Hospitalization)
  Sender: FDA-Public Use
  Company Number: None

PATIENT
  Age: 74 Year
  Sex: Male
  Weight: 84.3 kg

DRUGS (2)
  1. ABIRATERONE [Suspect]
     Indication: PROSTATE CANCER
     Dosage: 1000 MG  DAILY PO
     Route: 048
     Dates: start: 20130320, end: 20130401
  2. DASATINIB [Suspect]
     Indication: PROSTATE CANCER
     Dosage: 100 MG  DAILY  PO
     Route: 048
     Dates: start: 20130320, end: 20130401

REACTIONS (2)
  - Hypotension [None]
  - Pyrexia [None]
